FAERS Safety Report 6947507-0 (Version None)
Quarter: 2010Q3

REPORT INFORMATION
  Report Type: 
  Country: None (occurrence: None)
  Receive Date: 20100827
  Receipt Date: 20090914
  Transmission Date: 20110219
  Serious: No
  Sender: FDA-Public Use
  Company Number: US-ABBOTT-09P-163-0597788-00

PATIENT
  Sex: Male

DRUGS (3)
  1. NIASPAN [Suspect]
     Indication: BLOOD TRIGLYCERIDES
     Dates: start: 20090824
  2. NEBULIZER [Concomitant]
     Indication: CHRONIC OBSTRUCTIVE PULMONARY DISEASE
     Dosage: 3 TO 4 TIMES A DAY
  3. AZOR [Concomitant]
     Indication: HYPERTENSION
     Dosage: 10/40MG IN A.M.

REACTIONS (2)
  - FLUSHING [None]
  - SKIN BURNING SENSATION [None]
